FAERS Safety Report 7880058-8 (Version None)
Quarter: 2011Q4

REPORT INFORMATION
  Report Type: 
  Country: None (occurrence: None)
  Receive Date: 20111101
  Receipt Date: 20111028
  Transmission Date: 20120403
  Serious: Yes (Other)
  Sender: FDA-Public Use
  Company Number: AU-ROCHE-1007589

PATIENT
  Sex: Female

DRUGS (1)
  1. ISOTRETINOIN [Suspect]
     Indication: PRODUCT USED FOR UNKNOWN INDICATION

REACTIONS (2)
  - PREGNANCY [None]
  - MATERNAL EXPOSURE DURING PREGNANCY [None]
